FAERS Safety Report 9156840 (Version 1)
Quarter: 2013Q1

REPORT INFORMATION
  Report Type: Spontaneous
  Country: US (occurrence: None)
  Receive Date: 20130212
  Receipt Date: 20130212
  Transmission Date: 20140127
  Serious: Yes (Other)
  Sender: FDA-Public Use
  Company Number: TPA2012A02612

PATIENT
  Age: 70 Year
  Sex: Male

DRUGS (2)
  1. ACTOS (PIOGLITAZONE HYDROCHLORIDE) [Suspect]
  2. METFORMIN (METFORMIN) [Concomitant]
     Dates: start: 20050414, end: 20071113

REACTIONS (3)
  - Bladder cancer [None]
  - Urinary incontinence [None]
  - Urine flow decreased [None]
